FAERS Safety Report 10053031 (Version 2)
Quarter: 2014Q2

REPORT INFORMATION
  Report Type: Spontaneous
  Country: US (occurrence: US)
  Receive Date: 20140402
  Receipt Date: 20140530
  Transmission Date: 20141212
  Serious: Yes (Other)
  Sender: FDA-Public Use
  Company Number: US-PFIZER INC-2014092518

PATIENT
  Age: 7 Year
  Sex: Female
  Weight: 18.59 kg

DRUGS (6)
  1. GENOTROPIN [Suspect]
     Indication: SMALL FOR DATES BABY
     Dosage: 1 MG, DAILY
     Route: 058
     Dates: start: 20080917
  2. LEVOTHYROXINE [Concomitant]
     Indication: SECONDARY HYPOTHYROIDISM
     Dosage: 25 UG, DAILY
  3. PULMICORT [Concomitant]
     Indication: ASTHMA
     Dosage: UNK
  4. SINGULAIR [Concomitant]
     Indication: ASTHMA
     Dosage: 4 MG, DAILY
  5. XOPENEX [Concomitant]
     Dosage: UNK
  6. MIRALAX [Concomitant]
     Dosage: UNK

REACTIONS (3)
  - Arnold-Chiari malformation [Recovered/Resolved]
  - Post procedural complication [Unknown]
  - Headache [Unknown]
